FAERS Safety Report 17487455 (Version 1)
Quarter: 2020Q1

REPORT INFORMATION
  Report Type: Report from Study
  Country: US (occurrence: US)
  Receive Date: 20200303
  Receipt Date: 20200303
  Transmission Date: 20200409
  Serious: Yes (Other)
  Sender: FDA-Public Use
  Company Number: US-BAUSCH-BL-2020-006181

PATIENT
  Age: 66 Year
  Sex: Female

DRUGS (1)
  1. SILIQ [Suspect]
     Active Substance: BRODALUMAB
     Indication: PRODUCT USED FOR UNKNOWN INDICATION
     Dosage: 210MG/1.5ML PFS, QOW
     Route: 058

REACTIONS (2)
  - Postoperative wound infection [Unknown]
  - Tendon disorder [Unknown]

NARRATIVE: CASE EVENT DATE: 202001
